FAERS Safety Report 10935890 (Version 1)
Quarter: 2015Q1

REPORT INFORMATION
  Report Type: Spontaneous
  Country: US (occurrence: US)
  Receive Date: 20150320
  Receipt Date: 20150320
  Transmission Date: 20150721
  Serious: No
  Sender: FDA-Public Use
  Company Number: US-ASTRAZENECA-2015SE24044

PATIENT
  Sex: Female

DRUGS (2)
  1. BYDUREON [Suspect]
     Active Substance: EXENATIDE
     Dosage: THIRD  INJECTION, 2 MG, ONCE A WEEK
     Route: 058
  2. BYDUREON [Suspect]
     Active Substance: EXENATIDE
     Dosage: FOURTH INJECTION, 2 MG, ONCE A WEEK
     Route: 058

REACTIONS (3)
  - Injection site swelling [Unknown]
  - Injection site joint erythema [Unknown]
  - Injection site warmth [Unknown]
